FAERS Safety Report 7106536-7 (Version None)
Quarter: 2010Q4

REPORT INFORMATION
  Report Type: 
  Country: None (occurrence: None)
  Receive Date: 20101116
  Receipt Date: 20101106
  Transmission Date: 20110411
  Serious: Yes (Other)
  Sender: FDA-Public Use
  Company Number: GB-ELI_LILLY_AND_COMPANY-GB201011001871

PATIENT
  Sex: Male

DRUGS (1)
  1. XIGRIS [Suspect]
     Indication: SEPSIS
     Dosage: 24 UG/KG, UNK
     Route: 042
     Dates: start: 20101103, end: 20101106

REACTIONS (1)
  - ACUTE CORONARY SYNDROME [None]
